FAERS Safety Report 5877212-3 (Version None)
Quarter: 2008Q3

REPORT INFORMATION
  Report Type: 
  Country: None (occurrence: None)
  Receive Date: 20080910
  Receipt Date: 20080902
  Transmission Date: 20090109
  Serious: Yes (Death, Hospitalization)
  Sender: FDA-Public Use
  Company Number: BE-PFIZER INC-2008061940

PATIENT
  Sex: Male
  Weight: 40 kg

DRUGS (5)
  1. SU-011,248 [Suspect]
     Indication: HEAD AND NECK CANCER
     Dosage: DAILY DOSE:37.5MG
     Route: 048
     Dates: start: 20080530
  2. METRONIDAZOLE [Concomitant]
     Route: 048
     Dates: start: 20080514, end: 20080902
  3. MORPHINE [Concomitant]
     Dates: start: 20080712
  4. TEGRETOL [Concomitant]
     Route: 048
     Dates: start: 19920101, end: 20080902
  5. AMLOR [Concomitant]
     Route: 048
     Dates: end: 20080902

REACTIONS (5)
  - ANOREXIA [None]
  - DEHYDRATION [None]
  - GENERAL PHYSICAL HEALTH DETERIORATION [None]
  - HAEMORRHAGE [None]
  - MUSCULAR WEAKNESS [None]
